FAERS Safety Report 24163646 (Version 1)
Quarter: 2024Q3

REPORT INFORMATION
  Report Type: Spontaneous
  Country: US (occurrence: None)
  Receive Date: 20240731
  Receipt Date: 20240731
  Transmission Date: 20241017
  Serious: Yes (Other)
  Sender: Public
  Company Number: None

PATIENT
  Sex: Female

DRUGS (1)
  1. COSMETICS [Suspect]
     Active Substance: COSMETICS
     Dates: start: 20240517, end: 20240518

REACTIONS (3)
  - Poor quality product administered [None]
  - Erythema [None]
  - Skin swelling [None]

NARRATIVE: CASE EVENT DATE: 20240510
